FAERS Safety Report 12999819 (Version 1)
Quarter: 2016Q4

REPORT INFORMATION
  Report Type: Report from Study
  Country: TR (occurrence: TR)
  Receive Date: 20161205
  Receipt Date: 20161205
  Transmission Date: 20170207
  Serious: Yes (Other)
  Sender: FDA-Public Use
  Company Number: TR-BAXALTA-2016BLT008939

PATIENT
  Age: 6 Year
  Sex: Male

DRUGS (3)
  1. FEIBA [Suspect]
     Active Substance: ANTI-INHIBITOR COAGULANT COMPLEX
     Dosage: 1500 IU, 3 TIMES AS TREATMENT
     Route: 065
     Dates: start: 20161007
  2. FEIBA [Suspect]
     Active Substance: ANTI-INHIBITOR COAGULANT COMPLEX
     Indication: PROPHYLAXIS
     Dosage: UNK
     Route: 065
  3. FEIBA [Suspect]
     Active Substance: ANTI-INHIBITOR COAGULANT COMPLEX
     Dosage: 1500 IU, 3 TIMES AS TREATMENT
     Route: 065
     Dates: start: 20160111

REACTIONS (2)
  - Haemarthrosis [Unknown]
  - Traumatic haemorrhage [Unknown]

NARRATIVE: CASE EVENT DATE: 20150710
